FAERS Safety Report 7402799-9 (Version None)
Quarter: 2011Q2

REPORT INFORMATION
  Report Type: 
  Country: None (occurrence: None)
  Receive Date: 20110408
  Receipt Date: 20110328
  Transmission Date: 20111010
  Serious: Yes (Other)
  Sender: FDA-Public Use
  Company Number: PHHY2011FR22055

PATIENT
  Age: 76 Year
  Sex: Male

DRUGS (5)
  1. AMIODARONE [Concomitant]
  2. LEVOTHYROX [Concomitant]
  3. RASILEZ [Suspect]
     Indication: HYPERTENSION
     Dosage: 300 MG, DAILY
  4. ZANIDIP [Concomitant]
  5. LESCOL [Concomitant]

REACTIONS (3)
  - BLOOD CREATININE INCREASED [None]
  - RENAL FAILURE [None]
  - BLOOD POTASSIUM INCREASED [None]
